FAERS Safety Report 9744794 (Version 1)
Quarter: 2013Q4

REPORT INFORMATION
  Report Type: Spontaneous
  Country: US (occurrence: US)
  Receive Date: 20131210
  Receipt Date: 20131210
  Transmission Date: 20140711
  Serious: Yes (Other)
  Sender: FDA-Public Use
  Company Number: US-JNJFOC-20131202343

PATIENT
  Sex: Female

DRUGS (4)
  1. ZYRTEC IR 10MG TABLET [Suspect]
     Route: 065
  2. ZYRTEC IR 10MG TABLET [Suspect]
     Indication: ANAPHYLACTIC SHOCK
     Route: 065
  3. BENADRYL ALLERGY ULTRATAB [Suspect]
     Route: 065
  4. BENADRYL ALLERGY ULTRATAB [Suspect]
     Indication: ANAPHYLACTIC SHOCK
     Route: 065

REACTIONS (2)
  - Condition aggravated [Unknown]
  - Off label use [Unknown]
